FAERS Safety Report 19866020 (Version 1)
Quarter: 2021Q3

REPORT INFORMATION
  Report Type: Spontaneous
  Country: US (occurrence: US)
  Receive Date: 20210921
  Receipt Date: 20210921
  Transmission Date: 20211014
  Serious: Yes (Death, Other)
  Sender: FDA-Public Use
  Company Number: US-ROCHE-2912922

PATIENT
  Age: 65 Year
  Sex: Female
  Weight: 58.1 kg

DRUGS (1)
  1. ACTEMRA [Suspect]
     Active Substance: TOCILIZUMAB
     Indication: COVID-19
     Route: 065
     Dates: start: 20210830, end: 20210830

REACTIONS (5)
  - Death [Fatal]
  - Hypoxia [Unknown]
  - Metabolic acidosis [Unknown]
  - Diabetic ketoacidosis [Unknown]
  - Off label use [Unknown]
